FAERS Safety Report 24526871 (Version 1)
Quarter: 2024Q4

REPORT INFORMATION
  Report Type: Report from Study
  Country: US (occurrence: US)
  Receive Date: 20241021
  Receipt Date: 20241021
  Transmission Date: 20250115
  Serious: No
  Sender: ROCHE
  Company Number: US-ROCHE-3567066

PATIENT
  Age: 71 Year
  Sex: Female

DRUGS (1)
  1. ZELBORAF [Suspect]
     Active Substance: VEMURAFENIB
     Indication: Thyroid cancer
     Dosage: TAKE 2 TABLETS BY MOUTH
     Route: 048

REACTIONS (3)
  - Acne [Unknown]
  - Dry skin [Unknown]
  - Off label use [Unknown]
